FAERS Safety Report 5988642-3 (Version None)
Quarter: 2008Q4

REPORT INFORMATION
  Report Type: 
  Country: None (occurrence: None)
  Receive Date: 20081210
  Receipt Date: 20081202
  Transmission Date: 20090506
  Serious: Yes (Other)
  Sender: FDA-Public Use
  Company Number: JP-AVENTIS-200813313JP

PATIENT
  Age: 47 Year
  Sex: Female
  Weight: 70.2 kg

DRUGS (8)
  1. ARAVA [Suspect]
     Indication: RHEUMATOID ARTHRITIS
     Route: 048
     Dates: start: 20080425, end: 20080719
  2. RHEUMATREX                         /00113801/ [Suspect]
     Indication: RHEUMATOID ARTHRITIS
     Dosage: DOSE: 6 MG/WEEK
     Route: 048
     Dates: end: 20080719
  3. RHEUMATREX                         /00113801/ [Suspect]
     Dosage: DOSE: 6 MG/WEEK
     Route: 048
     Dates: start: 20080805
  4. VOLTAREN-XR [Concomitant]
     Indication: RHEUMATOID ARTHRITIS
     Route: 048
  5. SELBEX [Concomitant]
     Indication: GASTRITIS
     Route: 048
  6. CELECOX [Concomitant]
     Indication: RHEUMATOID ARTHRITIS
     Route: 048
     Dates: start: 20080411
  7. FOLIAMIN [Concomitant]
     Indication: RHEUMATOID ARTHRITIS
     Dosage: DOSE: 5 MG/WEEK
     Route: 048
  8. SELTOUCH [Concomitant]
     Indication: RHEUMATOID ARTHRITIS

REACTIONS (4)
  - ALANINE AMINOTRANSFERASE INCREASED [None]
  - ASPARTATE AMINOTRANSFERASE INCREASED [None]
  - BLOOD LACTATE DEHYDROGENASE INCREASED [None]
  - GAMMA-GLUTAMYLTRANSFERASE INCREASED [None]
